FAERS Safety Report 5871832-8 (Version None)
Quarter: 2008Q3

REPORT INFORMATION
  Report Type: 
  Country: None (occurrence: None)
  Receive Date: 20080904
  Receipt Date: 20080904
  Transmission Date: 20090109
  Serious: Yes (Hospitalization)
  Sender: FDA-Public Use
  Company Number: None

PATIENT
  Sex: Male
  Weight: 88 kg

DRUGS (5)
  1. CYCLOPHOSPHAMIDE [Suspect]
     Dosage: 1600 MG
  2. DOXORUBICIN HYDROCHLORIDE [Suspect]
     Dosage: 105 MG
  3. PREDNISONE TAB [Suspect]
     Dosage: 1000 MG
  4. RITUXIMAB [Suspect]
     Dosage: 800 MG
  5. VINCRISTINE SULFATE [Suspect]
     Dosage: 2 MG

REACTIONS (8)
  - ABDOMINAL PAIN [None]
  - DIALYSIS [None]
  - GENERAL PHYSICAL HEALTH DETERIORATION [None]
  - HEPATIC FUNCTION ABNORMAL [None]
  - PERITONITIS BACTERIAL [None]
  - RENAL FAILURE [None]
  - RESPIRATORY DISTRESS [None]
  - TACHYCARDIA [None]
